FAERS Safety Report 6164285-6 (Version None)
Quarter: 2009Q2

REPORT INFORMATION
  Report Type: 
  Country: None (occurrence: None)
  Receive Date: 20090422
  Receipt Date: 20090410
  Transmission Date: 20091009
  Serious: Yes (Other)
  Sender: FDA-Public Use
  Company Number: US-PFIZER INC-2009199728

PATIENT
  Age: 40 Year
  Sex: Female
  Weight: 69.841 kg

DRUGS (6)
  1. CHANTIX [Suspect]
     Indication: SMOKING CESSATION THERAPY
     Dates: start: 20090330, end: 20090405
  2. CLONAZEPAM [Concomitant]
     Dosage: UNK
  3. MULTI-VITAMINS [Concomitant]
     Dosage: UNK
  4. ASCORBIC ACID [Concomitant]
  5. LOVAZA [Concomitant]
     Dosage: UNK
  6. MELATONIN [Concomitant]
     Dosage: UNK

REACTIONS (1)
  - MUSCLE DISORDER [None]
